FAERS Safety Report 6443093-2 (Version None)
Quarter: 2009Q4

REPORT INFORMATION
  Report Type: 
  Country: None (occurrence: None)
  Receive Date: 20091117
  Receipt Date: 20091116
  Transmission Date: 20100525
  Serious: Yes (Hospitalization)
  Sender: FDA-Public Use
  Company Number: A0808599A

PATIENT
  Age: 56 Year
  Sex: Female
  Weight: 94.5 kg

DRUGS (11)
  1. ALLI [Suspect]
     Route: 048
  2. ZOLOFT [Concomitant]
     Indication: DEPRESSION
     Route: 048
  3. LEVOTHYROXINE SODIUM [Concomitant]
     Indication: HYPOTHYROIDISM
     Route: 048
  4. MULTI-VITAMIN [Concomitant]
     Indication: SUPPLEMENTATION THERAPY
     Route: 048
  5. IRON [Concomitant]
     Route: 048
  6. VITAMIN D [Concomitant]
     Route: 048
  7. VITAMIN B-12 [Concomitant]
     Route: 048
  8. GABAPENTIN [Concomitant]
     Route: 048
  9. TRAZODONE HCL [Concomitant]
     Indication: SLEEP DISORDER
     Route: 048
  10. METHOCARBAMOL [Concomitant]
     Route: 048
  11. DARVOCET [Concomitant]
     Indication: PAIN
     Route: 048

REACTIONS (11)
  - BALANCE DISORDER [None]
  - BLEPHAROSPASM [None]
  - DIZZINESS [None]
  - DIZZINESS POSTURAL [None]
  - EAR PAIN [None]
  - EAR PRURITUS [None]
  - EYE DISORDER [None]
  - FEELING ABNORMAL [None]
  - NAUSEA [None]
  - VERTIGO [None]
  - VISION BLURRED [None]
